FAERS Safety Report 9362899 (Version 1)
Quarter: 2013Q2

REPORT INFORMATION
  Report Type: Report from Study
  Country: CL (occurrence: CL)
  Receive Date: 20130624
  Receipt Date: 20130624
  Transmission Date: 20140414
  Serious: Yes (Other)
  Sender: FDA-Public Use
  Company Number: CL-ROCHE-1240103

PATIENT
  Age: 56 Year
  Sex: Female
  Weight: 56 kg

DRUGS (2)
  1. XELODA [Suspect]
     Indication: BREAST CANCER
     Route: 048
     Dates: start: 20130416, end: 20130522
  2. ZOLEDRONIC ACID [Concomitant]
     Route: 042
     Dates: start: 20130416

REACTIONS (2)
  - Neoplasm [Unknown]
  - Drug ineffective [Unknown]
